FAERS Safety Report 7774648-0 (Version None)
Quarter: 2011Q3

REPORT INFORMATION
  Report Type: 
  Country: None (occurrence: None)
  Receive Date: 20110923
  Receipt Date: 20110913
  Transmission Date: 20111222
  Serious: Yes (Hospitalization)
  Sender: FDA-Public Use
  Company Number: GB-PFIZER INC-2011215628

PATIENT
  Age: 71 Year
  Sex: Female

DRUGS (12)
  1. GAVISCON [Concomitant]
     Dosage: 5-10 ML, UNK
  2. SERETIDE [Concomitant]
  3. SUNITINIB MALATE [Suspect]
     Dosage: 37.5 MG, UNK
     Dates: start: 20061010
  4. SUNITINIB MALATE [Suspect]
     Indication: METASTATIC RENAL CELL CARCINOMA
     Dosage: 50 MG, 1X/DAY (4 WEEKS ON AND 2 WEEKS OFF SCHEDULE)
     Route: 048
     Dates: start: 20060810, end: 20060826
  5. BENDROFLUAZIDE [Concomitant]
     Dosage: 25 MG, UNK
  6. LEVOTHYROXINE SODIUM [Concomitant]
     Dosage: 50 UG, UNK
  7. ACETYLSALICYLIC ACID [Concomitant]
     Dosage: 75 MG, UNK
  8. AMLODIPINE [Concomitant]
     Dosage: 5 MG, UNK
  9. OMEPRAZOLE [Concomitant]
     Dosage: 20 MG, UNK
  10. DOMPERIDONE [Concomitant]
     Dosage: 10 MG, UNK
  11. SALBUTAMOL [Concomitant]
     Dosage: 100 UG, UNK
  12. VALSARTAN [Concomitant]
     Dosage: 160 MG, UNK

REACTIONS (2)
  - VAGINAL ULCERATION [None]
  - RECTAL ULCER [None]
